FAERS Safety Report 22055117 (Version 1)
Quarter: 2023Q1

REPORT INFORMATION
  Report Type: Spontaneous
  Country: US (occurrence: None)
  Receive Date: 20230302
  Receipt Date: 20230302
  Transmission Date: 20230418
  Serious: No
  Sender: FDA-Public Use
  Company Number: 2023A026885

PATIENT
  Sex: Female
  Weight: 65.3 kg

DRUGS (1)
  1. TEZSPIRE [Suspect]
     Active Substance: TEZEPELUMAB-EKKO
     Indication: Asthma
     Dosage: UNKNOWN
     Dates: start: 20221213

REACTIONS (3)
  - Cough [Unknown]
  - Sputum discoloured [Unknown]
  - Insomnia [Unknown]
